FAERS Safety Report 14995420 (Version 5)
Quarter: 2019Q4

REPORT INFORMATION
  Report Type: Spontaneous
  Country: US (occurrence: US)
  Receive Date: 20180611
  Receipt Date: 20191121
  Transmission Date: 20200122
  Serious: Yes (Hospitalization)
  Sender: FDA-Public Use
  Company Number: US-SA-2018SA148289

PATIENT
  Age: 61 Year
  Sex: Male

DRUGS (2)
  1. LANTUS SOLOSTAR [Suspect]
     Active Substance: INSULIN GLARGINE
     Dosage: 74 U, QD
     Route: 065
  2. LANTUS SOLOSTAR [Suspect]
     Active Substance: INSULIN GLARGINE
     Indication: TYPE 2 DIABETES MELLITUS
     Dosage: 75 U, HS
     Route: 065

REACTIONS (7)
  - Arthropathy [Unknown]
  - Pollakiuria [Unknown]
  - Injection site pain [Unknown]
  - Weight increased [Unknown]
  - Weight decreased [Unknown]
  - Device operational issue [Unknown]
  - Back disorder [Unknown]

NARRATIVE: CASE EVENT DATE: 201703
